FAERS Safety Report 7169502-1 (Version None)
Quarter: 2010Q4

REPORT INFORMATION
  Report Type: 
  Country: None (occurrence: None)
  Receive Date: 20101217
  Receipt Date: 20101207
  Transmission Date: 20110411
  Serious: Yes (Other)
  Sender: FDA-Public Use
  Company Number: CN-PAR PHARMACEUTICAL, INC-2010SCPR002335

PATIENT
  Age: 70 Year
  Sex: Male

DRUGS (2)
  1. DEXAMETHASONE [Suspect]
     Indication: MULTIPLE MYELOMA
     Dosage: 20 MG ON DAYS 1 - 4 AND 9 - 12
     Route: 065
  2. BORTEZOMIB [Suspect]
     Indication: MULTIPLE MYELOMA
     Dosage: 1.3 MG/M2 ON DAYS 1, 4, 8, AND 11 OF A 21-DAY CYCLE
     Route: 065

REACTIONS (8)
  - BLOOD CHOLESTEROL DECREASED [None]
  - BLOOD CREATININE DECREASED [None]
  - HAEMOGLOBIN DECREASED [None]
  - HIGH DENSITY LIPOPROTEIN DECREASED [None]
  - LACUNAR INFARCTION [None]
  - PLATELET COUNT DECREASED [None]
  - THROMBOTIC STROKE [None]
  - WHITE BLOOD CELL COUNT DECREASED [None]
